FAERS Safety Report 7688800-6 (Version None)
Quarter: 2011Q3

REPORT INFORMATION
  Report Type: 
  Country: None (occurrence: None)
  Receive Date: 20110817
  Receipt Date: 20110810
  Transmission Date: 20111222
  Serious: No
  Sender: FDA-Public Use
  Company Number: JP-PFIZER INC-2011158859

PATIENT
  Sex: Male
  Weight: 60 kg

DRUGS (5)
  1. FUROSEMIDE [Concomitant]
     Dosage: 40 MG
  2. AMLODIPINE BESILATE [Concomitant]
     Dosage: 2.5 MG
  3. MAGNESIUM SULFATE [Concomitant]
     Dosage: 990 MG
  4. NONACOG ALFA [Suspect]
     Indication: FACTOR IX DEFICIENCY
  5. NONACOG ALFA [Suspect]
     Indication: PROPHYLAXIS
     Dosage: 1000 IU, 3X/WEEK
     Route: 042
     Dates: start: 20100809, end: 20101001

REACTIONS (1)
  - NO ADVERSE EVENT [None]
